FAERS Safety Report 10221687 (Version 2)
Quarter: 2014Q2

REPORT INFORMATION
  Report Type: Spontaneous
  Country: US (occurrence: US)
  Receive Date: 20140606
  Receipt Date: 20140623
  Transmission Date: 20141212
  Serious: No
  Sender: FDA-Public Use
  Company Number: US-PFIZER INC-2014153548

PATIENT
  Age: 69 Year
  Sex: Female
  Weight: 62.13 kg

DRUGS (4)
  1. ATORVASTATIN CALCIUM [Suspect]
     Indication: BLOOD CHOLESTEROL INCREASED
     Dosage: 20 MG, 1X/DAY
     Route: 048
     Dates: start: 201401, end: 201404
  2. TOPROL [Concomitant]
     Dosage: 25 MG, 1X/DAY
  3. ROPINIROLE [Concomitant]
     Dosage: 0.5 MG, 1X/DAY
  4. LORAZEPAM [Concomitant]
     Dosage: UNK, 1X/DAY

REACTIONS (3)
  - Back disorder [Recovered/Resolved]
  - Peripheral coldness [Recovered/Resolved]
  - Cyanosis [Recovered/Resolved]
